FAERS Safety Report 8118048-2 (Version None)
Quarter: 2012Q1

REPORT INFORMATION
  Report Type: 
  Country: None (occurrence: None)
  Receive Date: 20120207
  Receipt Date: 20120202
  Transmission Date: 20120608
  Serious: No
  Sender: FDA-Public Use
  Company Number: US-PFIZER INC-2012029543

PATIENT
  Sex: Male
  Weight: 75.74 kg

DRUGS (6)
  1. WELLBUTRIN [Concomitant]
     Dosage: 40 MG, 2X/DAY
  2. NEURONTIN [Concomitant]
     Dosage: 300 MG, 4X/DAY
  3. PROTONIX [Suspect]
     Indication: GASTROOESOPHAGEAL REFLUX DISEASE
     Dosage: 40 MG, 2X/DAY
     Route: 048
     Dates: start: 20091001
  4. IBUPROFEN [Concomitant]
     Dosage: 800 MG, 3X/DAY
  5. VICODIN [Concomitant]
     Dosage: 7.5 MG, 3X/DAY
  6. SERTRALINE [Concomitant]
     Dosage: 40 MG, 1X/DAY

REACTIONS (2)
  - VITAMIN D DECREASED [None]
  - DRUG INEFFECTIVE [None]
